FAERS Safety Report 9164128 (Version 2)
Quarter: 2013Q2

REPORT INFORMATION
  Report Type: Spontaneous
  Country: GB (occurrence: GB)
  Receive Date: 20130315
  Receipt Date: 20130529
  Transmission Date: 20140414
  Serious: Yes (Death, Hospitalization)
  Sender: FDA-Public Use
  Company Number: GB-AMGEN-GBRSP2013016390

PATIENT
  Age: 63 Year
  Sex: Male

DRUGS (2)
  1. PROLIA [Suspect]
     Indication: PRODUCT USED FOR UNKNOWN INDICATION
     Dosage: UNK
     Dates: start: 20130116
  2. PREDNISOLONE [Concomitant]

REACTIONS (5)
  - Renal failure acute [Unknown]
  - Abdominal sepsis [Unknown]
  - Urinary tract infection [Unknown]
  - Sepsis [Unknown]
  - Infection [Fatal]
